FAERS Safety Report 9199809 (Version 1)
Quarter: 2013Q1

REPORT INFORMATION
  Report Type: Report from Study
  Country: US (occurrence: US)
  Receive Date: 20130329
  Receipt Date: 20130329
  Transmission Date: 20140127
  Serious: Yes (Hospitalization, Other)
  Sender: FDA-Public Use
  Company Number: US-ABBOTT-13P-163-1068494-00

PATIENT
  Sex: Female
  Weight: 65.38 kg

DRUGS (1)
  1. HUMIRA [Suspect]
     Indication: RHEUMATOID ARTHRITIS
     Route: 058
     Dates: start: 2000

REACTIONS (8)
  - Chronic obstructive pulmonary disease [Unknown]
  - Chronic obstructive pulmonary disease [Unknown]
  - Chronic obstructive pulmonary disease [Unknown]
  - Hiatus hernia [Unknown]
  - Vitamin D decreased [Unknown]
  - Asthma [Unknown]
  - Asthma [Unknown]
  - Asthma [Unknown]
